FAERS Safety Report 6886899-8 (Version None)
Quarter: 2010Q3

REPORT INFORMATION
  Report Type: 
  Country: None (occurrence: None)
  Receive Date: 20100730
  Receipt Date: 20100720
  Transmission Date: 20110219
  Serious: Yes (Other)
  Sender: FDA-Public Use
  Company Number: FR-JNJFOC-20091200690

PATIENT
  Age: 24 Year
  Sex: Female
  Weight: 83 kg

DRUGS (11)
  1. REMICADE [Suspect]
     Indication: ENTEROCOLITIS HAEMORRHAGIC
     Route: 042
  2. REMICADE [Suspect]
     Route: 042
  3. REMICADE [Suspect]
     Route: 042
  4. REMICADE [Suspect]
     Route: 042
  5. REMICADE [Suspect]
     Route: 042
  6. REMICADE [Suspect]
     Route: 042
  7. REMICADE [Suspect]
     Route: 042
  8. PENTASA [Concomitant]
  9. SOLUPRED [Concomitant]
  10. BETNESOL [Concomitant]
  11. CONTRACEPTIVE THERAPY [Concomitant]

REACTIONS (4)
  - COLITIS [None]
  - DRUG EXPOSURE DURING PREGNANCY [None]
  - PELVIC PAIN [None]
  - PREMATURE SEPARATION OF PLACENTA [None]
